FAERS Safety Report 9478706 (Version 1)
Quarter: 2013Q3

REPORT INFORMATION
  Report Type: Spontaneous
  Country: GB (occurrence: GB)
  Receive Date: 20130827
  Receipt Date: 20130827
  Transmission Date: 20140515
  Serious: Yes (Hospitalization)
  Sender: FDA-Public Use
  Company Number: GB-TEVA-427547ISR

PATIENT
  Age: 35 Year
  Sex: Female

DRUGS (2)
  1. CLOPIDOGREL [Suspect]
     Indication: HYPERVISCOSITY SYNDROME
  2. ASPIRIN [Suspect]
     Indication: HYPERVISCOSITY SYNDROME

REACTIONS (2)
  - Epistaxis [Recovered/Resolved]
  - Platelet dysfunction [Recovering/Resolving]
